FAERS Safety Report 15479392 (Version 1)
Quarter: 2018Q4

REPORT INFORMATION
  Report Type: Spontaneous
  Country: None (occurrence: AT)
  Receive Date: 20181009
  Receipt Date: 20181009
  Transmission Date: 20190205
  Serious: Yes (Other)
  Sender: FDA-Public Use
  Company Number: AT-LABORATOIRE HRA PHARMA-2055854

PATIENT
  Age: 50 Year
  Sex: Male
  Weight: 67 kg

DRUGS (7)
  1. DOXAZOSIN [Concomitant]
     Active Substance: DOXAZOSIN\DOXAZOSIN MESYLATE
     Dates: start: 20180516, end: 20180604
  2. PANTOPRAZOLE [Concomitant]
     Active Substance: PANTOPRAZOLE
     Dates: start: 20180403
  3. LYSODREN [Suspect]
     Active Substance: MITOTANE
     Indication: ADJUVANT THERAPY
  4. CARVEDILOL. [Concomitant]
     Active Substance: CARVEDILOL
     Dates: start: 20180516, end: 20180911
  5. IRBESARTAN. [Concomitant]
     Active Substance: IRBESARTAN
  6. HYDROCORTISONE. [Concomitant]
     Active Substance: HYDROCORTISONE
  7. IRBESARTAN AND HYDROCHLOROTHIAZIDE [Concomitant]
     Active Substance: HYDROCHLOROTHIAZIDE\IRBESARTAN

REACTIONS (14)
  - Fatigue [Recovering/Resolving]
  - Peripheral coldness [Recovering/Resolving]
  - Off label use [Recovering/Resolving]
  - Weight decreased [Recovering/Resolving]
  - Gastrointestinal disorder [Recovering/Resolving]
  - Chills [Recovering/Resolving]
  - Blood count abnormal [Recovering/Resolving]
  - Feeling hot [Recovering/Resolving]
  - Dyslipidaemia [Recovering/Resolving]
  - Blood pressure inadequately controlled [Recovering/Resolving]
  - Dysgeusia [Recovering/Resolving]
  - Muscular weakness [Recovering/Resolving]
  - Adrenal insufficiency [Recovering/Resolving]
  - Drug interaction [Recovering/Resolving]
